FAERS Safety Report 12424870 (Version 6)
Quarter: 2020Q3

REPORT INFORMATION
  Report Type: Report from Study
  Country: US (occurrence: US)
  Receive Date: 20160601
  Receipt Date: 20171016
  Transmission Date: 20201105
  Serious: Yes (Hospitalization)
  Sender: FDA-Public Use
  Company Number: US-ROCHE-1765262

PATIENT
  Age: 87 Year
  Sex: Male
  Weight: 75 kg

DRUGS (29)
  1. CASPOFUNGIN ACETATE. [Concomitant]
     Active Substance: CASPOFUNGIN ACETATE
     Indication: FUNGAL INFECTION
     Route: 042
     Dates: start: 20160421
  2. PANTOPRAZOLE [Concomitant]
     Active Substance: PANTOPRAZOLE
     Indication: PROPHYLAXIS
     Dosage: INDICATION: GASTRIC REFLUX PROPHYLAXIS
     Route: 048
     Dates: start: 20160212, end: 20160617
  3. DEXTROMETHORPHAN/GUAIFENESIN [Concomitant]
     Active Substance: DEXTROMETHORPHAN\GUAIFENESIN
     Indication: COUGH
     Route: 048
     Dates: start: 20160420
  4. POTASSIUM CHLORIDE. [Concomitant]
     Active Substance: POTASSIUM CHLORIDE
     Indication: HYPOKALAEMIA
     Route: 042
     Dates: start: 20160304
  5. ISAVUCONAZOLE [Concomitant]
     Active Substance: ISAVUCONAZOLE
     Indication: FUNGAL INFECTION
     Route: 048
     Dates: start: 20160518, end: 20160518
  6. CALCIUM CARBONATE. [Concomitant]
     Active Substance: CALCIUM CARBONATE
     Route: 048
     Dates: start: 20000501, end: 20160601
  7. HEPARIN [Concomitant]
     Active Substance: HEPARIN SODIUM
     Dosage: PICC CARE
     Route: 042
     Dates: start: 20160316
  8. VORICONAZOLE. [Concomitant]
     Active Substance: VORICONAZOLE
     Indication: SYNCOPE
     Route: 048
     Dates: start: 20160404
  9. DOCUSATE SODIUM. [Concomitant]
     Active Substance: DOCUSATE SODIUM
     Indication: CONSTIPATION
     Route: 048
     Dates: start: 20160408
  10. MAGNESIUM SULFATE. [Concomitant]
     Active Substance: MAGNESIUM SULFATE
     Indication: HYPOMAGNESAEMIA
     Route: 042
     Dates: start: 20160326
  11. MERREM [Concomitant]
     Active Substance: MEROPENEM
     Indication: PNEUMONIA
     Route: 042
     Dates: start: 20160510, end: 20160617
  12. IDASANUTLIN. [Suspect]
     Active Substance: IDASANUTLIN
     Indication: ACUTE MYELOID LEUKAEMIA
     Dosage: MOST RECENT DOSE: 24/MAY/2016 AT 200 MG. IDASANUTLIN WILL BE ADMINISTERED ORALLY DAILY ON DAYS 1?5 O
     Route: 048
     Dates: start: 20160421
  13. CALCIUM CARBONATE. [Concomitant]
     Active Substance: CALCIUM CARBONATE
     Indication: DYSPEPSIA
     Route: 048
     Dates: start: 20160201
  14. MAALOX ANTACID [Concomitant]
     Active Substance: ALUMINUM HYDROXIDE\DIMETHICONE\MAGNESIUM HYDROXIDE
     Indication: DYSPEPSIA
     Route: 050
     Dates: start: 20160408
  15. ONDANSETRON [Concomitant]
     Active Substance: ONDANSETRON
     Indication: NAUSEA
     Route: 048
     Dates: start: 20160408
  16. ONDANSETRON [Concomitant]
     Active Substance: ONDANSETRON
     Route: 048
     Dates: start: 20160315
  17. RENAGEL [Concomitant]
     Active Substance: SEVELAMER HYDROCHLORIDE
     Indication: HYPERPHOSPHATAEMIA
     Route: 048
     Dates: start: 20160422, end: 20160427
  18. DIPHENHYDRAMINE. [Concomitant]
     Active Substance: DIPHENHYDRAMINE
     Indication: PREMEDICATION
     Route: 042
     Dates: start: 20160401
  19. ALLOPURINOL. [Concomitant]
     Active Substance: ALLOPURINOL
     Indication: TUMOUR LYSIS SYNDROME
     Route: 048
     Dates: start: 20160418, end: 20160425
  20. NYSTATIN. [Concomitant]
     Active Substance: NYSTATIN
     Route: 061
     Dates: start: 20160424
  21. TRIAMCINOLONE [Concomitant]
     Active Substance: TRIAMCINOLONE
     Indication: RASH
     Route: 061
     Dates: start: 20160425, end: 20160427
  22. BISACODYL. [Concomitant]
     Active Substance: BISACODYL
     Indication: CONSTIPATION
     Route: 048
     Dates: start: 20160408
  23. CASPOFUNGIN ACETATE. [Concomitant]
     Active Substance: CASPOFUNGIN ACETATE
     Route: 042
     Dates: start: 20160206
  24. VENETOCLAX. [Suspect]
     Active Substance: VENETOCLAX
     Indication: ACUTE MYELOID LEUKAEMIA
     Dosage: MOST RECENT DOSE: 24/MAY/2016 AT 400 MG
     Route: 048
     Dates: start: 20160421
  25. VALACYCLOVIR [Concomitant]
     Active Substance: VALACYCLOVIR HYDROCHLORIDE
     Indication: ANTIVIRAL PROPHYLAXIS
     Route: 048
     Dates: start: 20160212, end: 20160616
  26. LEVOFLOXACIN. [Concomitant]
     Active Substance: LEVOFLOXACIN
     Indication: PROPHYLAXIS
     Route: 048
     Dates: start: 20160314, end: 20160524
  27. HYDROCORTISONE. [Concomitant]
     Active Substance: HYDROCORTISONE
     Indication: PREMEDICATION
     Dosage: TRANSFUSION
     Route: 042
     Dates: start: 20160206
  28. LOPERAMIDE [Concomitant]
     Active Substance: LOPERAMIDE
     Indication: DIARRHOEA
     Route: 048
     Dates: start: 20160404
  29. SODIUM CHLORIDE. [Concomitant]
     Active Substance: SODIUM CHLORIDE
     Indication: ORTHOSTATIC HYPOTENSION
     Route: 042
     Dates: start: 20160319, end: 20160618

REACTIONS (1)
  - Blood bilirubin increased [Recovered/Resolved with Sequelae]

NARRATIVE: CASE EVENT DATE: 20160525
